FAERS Safety Report 4479646-0 (Version None)
Quarter: 2004Q4

REPORT INFORMATION
  Report Type: 
  Country: None (occurrence: None)
  Receive Date: 20041020
  Receipt Date: 20041013
  Transmission Date: 20050328
  Serious: Yes (Death)
  Sender: FDA-Public Use
  Company Number: PHBS2004US13757

PATIENT
  Age: 24 Year
  Sex: Female

DRUGS (7)
  1. CLOFAZIMINE [Suspect]
     Indication: TUBERCULOSIS
     Route: 065
  2. AMIKACIN [Suspect]
     Indication: TUBERCULOSIS
  3. ETHAMBUTOL [Suspect]
     Indication: TUBERCULOSIS
  4. SPARFLOXACIN [Suspect]
     Indication: TUBERCULOSIS
  5. CYCLOSERINE [Suspect]
     Indication: TUBERCULOSIS
  6. PARA-AMINOSALICYLATE ACID POWDER [Suspect]
     Indication: TUBERCULOSIS
  7. AMOXICILLIN W/CLAVULANIC ACID [Suspect]
     Indication: TUBERCULOSIS
     Route: 065

REACTIONS (7)
  - DRUG EXPOSURE DURING PREGNANCY [None]
  - DRUG INEFFECTIVE [None]
  - GASTROINTESTINAL DISORDER [None]
  - NORMAL NEWBORN [None]
  - POST PROCEDURAL COMPLICATION [None]
  - PREGNANCY [None]
  - RESPIRATORY FAILURE [None]
